FAERS Safety Report 15111239 (Version 1)
Quarter: 2018Q3

REPORT INFORMATION
  Report Type: Spontaneous
  Country: JP (occurrence: JP)
  Receive Date: 20180705
  Receipt Date: 20180705
  Transmission Date: 20181010
  Serious: Yes (Hospitalization)
  Sender: FDA-Public Use
  Company Number: JP-JNJFOC-20180428233

PATIENT
  Age: 77 Year
  Sex: Female

DRUGS (4)
  1. MUCOSTA [Concomitant]
     Active Substance: REBAMIPIDE
     Route: 065
  2. VERAPAMIL HYDROCHLORIDE. [Concomitant]
     Active Substance: VERAPAMIL HYDROCHLORIDE
     Route: 065
  3. XARELTO [Suspect]
     Active Substance: RIVAROXABAN
     Indication: ATRIAL FIBRILLATION
     Route: 048
     Dates: start: 20160402, end: 20171010
  4. HYDROCHLOROTHIAZIDE W/TELMISARTAN [Concomitant]
     Active Substance: HYDROCHLOROTHIAZIDE\TELMISARTAN
     Route: 065

REACTIONS (7)
  - Vomiting [Recovering/Resolving]
  - Haematemesis [Recovered/Resolved]
  - Shock haemorrhagic [Recovered/Resolved]
  - Nausea [Recovering/Resolving]
  - Oesophageal rupture [Recovering/Resolving]
  - Haemorrhagic anaemia [Recovering/Resolving]
  - Oesophageal haemorrhage [Recovered/Resolved]

NARRATIVE: CASE EVENT DATE: 20171004
